FAERS Safety Report 15322952 (Version 2)
Quarter: 2018Q4

REPORT INFORMATION
  Report Type: Spontaneous
  Country: GB (occurrence: GB)
  Receive Date: 20180827
  Receipt Date: 20181002
  Transmission Date: 20190204
  Serious: Yes (Hospitalization)
  Sender: FDA-Public Use
  Company Number: GB-JNJFOC-20180834402

PATIENT
  Sex: Male
  Weight: 110.7 kg

DRUGS (8)
  1. PRASUGREL. [Concomitant]
     Active Substance: PRASUGREL
     Route: 048
     Dates: start: 20180710
  2. STELARA [Suspect]
     Active Substance: USTEKINUMAB
     Indication: PSORIASIS
     Route: 058
     Dates: start: 20121030
  3. ATORVASTATIN [Concomitant]
     Active Substance: ATORVASTATIN
     Route: 048
     Dates: start: 20180710
  4. GTN [Concomitant]
     Active Substance: NITROGLYCERIN
     Route: 048
     Dates: start: 20180710
  5. RAMPRIL [Concomitant]
     Active Substance: RAMIPRIL
     Route: 048
     Dates: start: 20180710
  6. BISOPROLOL FUMARATE. [Concomitant]
     Active Substance: BISOPROLOL FUMARATE
     Route: 048
     Dates: start: 20180710
  7. ASPIRIN. [Concomitant]
     Active Substance: ASPIRIN
     Route: 048
     Dates: start: 20180710
  8. LEFLUNOMIDE. [Concomitant]
     Active Substance: LEFLUNOMIDE
     Route: 048
     Dates: start: 20180710

REACTIONS (1)
  - Myocardial infarction [Recovered/Resolved]
